FAERS Safety Report 6564574-7 (Version None)
Quarter: 2010Q1

REPORT INFORMATION
  Report Type: 
  Country: None (occurrence: None)
  Receive Date: 20100201
  Receipt Date: 20100119
  Transmission Date: 20100710
  Serious: Yes (Other)
  Sender: FDA-Public Use
  Company Number: PHEH2010US01037

PATIENT
  Age: 68 Year
  Sex: Female
  Weight: 70.295 kg

DRUGS (7)
  1. RECLAST [Suspect]
     Indication: OSTEOPOROSIS
     Dosage: 5MG YEARLY
     Route: 042
     Dates: start: 20091109
  2. MULTI-VITAMINS [Concomitant]
  3. SENOKOT                                 /USA/ [Concomitant]
  4. CALCIUM [Concomitant]
  5. VYTORIN [Concomitant]
     Dosage: 40 MG, UNK
  6. ASPIRIN [Concomitant]
     Dosage: 81 MG, UNK
  7. TYLENOL PM [Concomitant]

REACTIONS (4)
  - ASTHENIA [None]
  - DISABILITY [None]
  - FATIGUE [None]
  - PAIN [None]
